FAERS Safety Report 4617845-5 (Version None)
Quarter: 2005Q1

REPORT INFORMATION
  Report Type: 
  Country: None (occurrence: None)
  Receive Date: 20050324
  Receipt Date: 20040524
  Transmission Date: 20050727
  Serious: Yes (Other)
  Sender: FDA-Public Use
  Company Number: FR-GLAXOSMITHKLINE-B0334816A

PATIENT
  Age: 76 Year
  Sex: Female
  Weight: 80 kg

DRUGS (4)
  1. AVANDIA [Suspect]
     Dosage: 4MG PER DAY
     Route: 048
     Dates: start: 20040501, end: 20040701
  2. LIPANTHYL [Concomitant]
     Route: 048
  3. URBANYL [Concomitant]
     Route: 048
  4. DAFLON [Concomitant]
     Route: 048

REACTIONS (1)
  - LEUKOPENIA [None]
